FAERS Safety Report 13580619 (Version 2)
Quarter: 2017Q2

REPORT INFORMATION
  Report Type: Report from Study
  Country: CA (occurrence: CA)
  Receive Date: 20170525
  Receipt Date: 20170605
  Transmission Date: 20170830
  Serious: Yes (Other)
  Sender: FDA-Public Use
  Company Number: CA-REGENERON PHARMACEUTICALS, INC.-2017-16226

PATIENT

DRUGS (6)
  1. EYLEA [Suspect]
     Active Substance: AFLIBERCEPT
     Dosage: UNSPECIFIED
     Dates: start: 20161103, end: 20161103
  2. EYLEA [Suspect]
     Active Substance: AFLIBERCEPT
     Indication: RETINAL VEIN OCCLUSION
     Dosage: UNSPECIFIED
     Dates: start: 20160824, end: 20160824
  3. EYLEA [Suspect]
     Active Substance: AFLIBERCEPT
     Dosage: UNSPECIFIED
     Dates: start: 20170331, end: 20170331
  4. EYLEA [Suspect]
     Active Substance: AFLIBERCEPT
     Dosage: UNSPECIFIED
     Dates: start: 20170203, end: 20170203
  5. EYLEA [Suspect]
     Active Substance: AFLIBERCEPT
     Dosage: UNSPECIFIED
     Dates: start: 20160929, end: 20160929
  6. EYLEA [Suspect]
     Active Substance: AFLIBERCEPT
     Dosage: UNSPECIFIED
     Dates: start: 20161214, end: 20161214

REACTIONS (3)
  - Visual impairment [Not Recovered/Not Resolved]
  - Vision blurred [Unknown]
  - Dyschromatopsia [Unknown]

NARRATIVE: CASE EVENT DATE: 20170515
